FAERS Safety Report 14364791 (Version 27)
Quarter: 2019Q3

REPORT INFORMATION
  Report Type: Report from Study
  Country: US (occurrence: US)
  Receive Date: 20180108
  Receipt Date: 20190809
  Transmission Date: 20191004
  Serious: Yes (Death, Hospitalization)
  Sender: FDA-Public Use
  Company Number: US-ACTELION-A-US2017-155408

PATIENT
  Age: 72 Year
  Sex: Female
  Weight: 81.63 kg

DRUGS (24)
  1. OPSUMIT [Suspect]
     Active Substance: MACITENTAN
     Indication: PULMONARY ARTERIAL HYPERTENSION
     Dosage: 10 MG
     Route: 048
  2. COLACE [Concomitant]
     Active Substance: DOCUSATE SODIUM
  3. METHYLPREDNISOLONE. [Concomitant]
     Active Substance: METHYLPREDNISOLONE
  4. VELETRI [Suspect]
     Active Substance: EPOPROSTENOL
     Indication: PULMONARY ARTERIAL HYPERTENSION
     Dosage: 16 NG/KG, PER MIN
     Route: 042
  5. VELETRI [Suspect]
     Active Substance: EPOPROSTENOL
     Dosage: 14 NG/KG, PER MIN
     Route: 042
  6. VIBERZI [Concomitant]
     Active Substance: ELUXADOLINE
  7. KLOR-CON [Concomitant]
     Active Substance: POTASSIUM CHLORIDE
  8. DOXYCYCLINE. [Concomitant]
     Active Substance: DOXYCYCLINE
  9. CEPHALEXIN. [Concomitant]
     Active Substance: CEPHALEXIN
  10. SYNTHROID [Concomitant]
     Active Substance: LEVOTHYROXINE SODIUM
  11. VELETRI [Suspect]
     Active Substance: EPOPROSTENOL
     Dosage: 11 NG/KG, PER MIN
     Route: 042
  12. MUPIROCIN. [Concomitant]
     Active Substance: MUPIROCIN
  13. SPIRIVA [Concomitant]
     Active Substance: TIOTROPIUM BROMIDE MONOHYDRATE
  14. VELETRI [Suspect]
     Active Substance: EPOPROSTENOL
     Dosage: 6 NG/KG, PER MIN
     Route: 042
  15. ADEMPAS [Concomitant]
     Active Substance: RIOCIGUAT
  16. NASONEX [Concomitant]
     Active Substance: MOMETASONE FUROATE
  17. AMOXICILLIN. [Concomitant]
     Active Substance: AMOXICILLIN
  18. FLUTICASONE. [Concomitant]
     Active Substance: FLUTICASONE
  19. VELETRI [Suspect]
     Active Substance: EPOPROSTENOL
     Dosage: 12 NG/KG, PER MIN
     Route: 042
  20. VELETRI [Suspect]
     Active Substance: EPOPROSTENOL
     Dosage: 10 NG/KG, PER MIN
     Route: 042
  21. VELETRI [Suspect]
     Active Substance: EPOPROSTENOL
     Dosage: 13 NG/KG, PER MIN
     Route: 042
  22. AMLODIPINE [Concomitant]
     Active Substance: AMLODIPINE BESYLATE
  23. METOLAZONE. [Concomitant]
     Active Substance: METOLAZONE
  24. ADCIRCA [Concomitant]
     Active Substance: TADALAFIL

REACTIONS (46)
  - Dialysis [Unknown]
  - Oedema peripheral [Unknown]
  - Paracentesis [Unknown]
  - Catheter management [Recovered/Resolved]
  - Lethargy [Unknown]
  - Fatigue [Unknown]
  - Cardiac pacemaker insertion [Unknown]
  - Seasonal allergy [Unknown]
  - Cough [Recovering/Resolving]
  - Ascites [Unknown]
  - Abdominal distension [Unknown]
  - Dyspnoea exertional [Unknown]
  - Dizziness [Unknown]
  - Pallor [Unknown]
  - Device breakage [Recovered/Resolved]
  - Pyrexia [Unknown]
  - Condition aggravated [Unknown]
  - Pruritus generalised [Unknown]
  - Catheter site pruritus [Unknown]
  - Vascular cauterisation [Unknown]
  - Transfusion [Unknown]
  - Hepatic haemorrhage [Unknown]
  - Gastrointestinal haemorrhage [Recovered/Resolved]
  - Respiratory distress [Unknown]
  - Diarrhoea [Unknown]
  - Arteriovenous malformation [Unknown]
  - Blood pressure decreased [Recovering/Resolving]
  - Anaemia [Unknown]
  - Back pain [Not Recovered/Not Resolved]
  - Epistaxis [Unknown]
  - Hospitalisation [Unknown]
  - Hypoglycaemia [Unknown]
  - Chills [Recovering/Resolving]
  - Peripheral swelling [Unknown]
  - Vomiting [Unknown]
  - Palpitations [Unknown]
  - Renal disorder [Unknown]
  - Haematochezia [Unknown]
  - Dyspnoea [Unknown]
  - Oedema [Recovering/Resolving]
  - Heart rate increased [Unknown]
  - Death [Fatal]
  - Unevaluable event [Unknown]
  - Blood creatinine increased [Unknown]
  - Haemoglobin decreased [Unknown]
  - Infection [Unknown]

NARRATIVE: CASE EVENT DATE: 2018
